FAERS Safety Report 11050357 (Version 3)
Quarter: 2015Q3

REPORT INFORMATION
  Report Type: Report from Study
  Country: US (occurrence: US)
  Receive Date: 20150421
  Receipt Date: 20150723
  Transmission Date: 20151125
  Serious: Yes (Hospitalization, Other)
  Sender: FDA-Public Use
  Company Number: US-AMGEN-USASL2015037090

PATIENT
  Age: 67 Year
  Sex: Female
  Weight: 70.3 kg

DRUGS (8)
  1. METHOTREXATE SODIUM. [Concomitant]
     Active Substance: METHOTREXATE SODIUM
     Dosage: 100 UNIT, QWK, 25 MG/ML INJECTION SOLUTION
     Route: 058
  2. DIOVAN [Concomitant]
     Active Substance: VALSARTAN
     Dosage: UNK
  3. COREG [Concomitant]
     Active Substance: CARVEDILOL
     Dosage: UNK
  4. PRILOSEC [Concomitant]
     Active Substance: OMEPRAZOLE MAGNESIUM
     Dosage: UNK
  5. AMBIEN [Concomitant]
     Active Substance: ZOLPIDEM TARTRATE
     Dosage: UNK
  6. ENBREL [Suspect]
     Active Substance: ETANERCEPT
     Indication: RHEUMATOID ARTHRITIS
     Dosage: 50 MG, QWK
     Route: 058
     Dates: start: 20141112, end: 20150319
  7. METHOTREXATE [Concomitant]
     Active Substance: METHOTREXATE
     Dosage: UNK
  8. LIPITOR [Concomitant]
     Active Substance: ATORVASTATIN CALCIUM
     Dosage: 20 MG, UNK

REACTIONS (6)
  - Cardiac failure congestive [Recovered/Resolved]
  - Gastrointestinal bacterial infection [Recovered/Resolved]
  - Bronchitis [Recovered/Resolved]
  - Angina unstable [Recovered/Resolved]
  - Coronary artery occlusion [Recovered/Resolved]
  - Diarrhoea [Recovered/Resolved]

NARRATIVE: CASE EVENT DATE: 2015
